FAERS Safety Report 13010546 (Version 1)
Quarter: 2016Q4

REPORT INFORMATION
  Report Type: Spontaneous
  Country: US (occurrence: US)
  Receive Date: 20161208
  Receipt Date: 20161208
  Transmission Date: 20170207
  Serious: No
  Sender: FDA-Public Use
  Company Number: None

PATIENT
  Age: 62 Year
  Sex: Male
  Weight: 85.28 kg

DRUGS (7)
  1. VITAMIN C [Concomitant]
     Active Substance: ASCORBIC ACID
  2. BENICAR [Concomitant]
     Active Substance: OLMESARTAN MEDOXOMIL
  3. L-LYSINE [Concomitant]
     Active Substance: LYSINE
  4. CENTRUM SILVER [Concomitant]
     Active Substance: MINERALS\VITAMINS
  5. OSTEOBIFLEX [Concomitant]
  6. ROSUVASTATIN CALCIUM 10MG TAP [Suspect]
     Active Substance: ROSUVASTATIN CALCIUM
     Indication: LOW DENSITY LIPOPROTEIN INCREASED
     Route: 048
     Dates: end: 20160929
  7. L PROLIDE [Concomitant]

REACTIONS (3)
  - Muscle spasms [None]
  - Depressed level of consciousness [None]
  - Amnesia [None]

NARRATIVE: CASE EVENT DATE: 20160928
